FAERS Safety Report 15578838 (Version 5)
Quarter: 2018Q4

REPORT INFORMATION
  Report Type: Spontaneous
  Country: US (occurrence: US)
  Receive Date: 20181102
  Receipt Date: 20181121
  Transmission Date: 20190205
  Serious: Yes (Other)
  Sender: FDA-Public Use
  Company Number: US-TEVA-2018-US-969603

PATIENT
  Age: 58 Year
  Sex: Female

DRUGS (5)
  1. CLONAZEPAM TEVA [Suspect]
     Active Substance: CLONAZEPAM
     Indication: ANXIETY
     Route: 065
  2. ATENOLOL. [Concomitant]
     Active Substance: ATENOLOL
  3. CLONAZEPAM TEVA [Suspect]
     Active Substance: CLONAZEPAM
     Indication: PALPITATIONS
  4. CLONAZEPAM TEVA [Suspect]
     Active Substance: CLONAZEPAM
     Indication: PANIC ATTACK
  5. TENORMIN [Concomitant]
     Active Substance: ATENOLOL

REACTIONS (8)
  - Seizure [Unknown]
  - Mental disorder [Unknown]
  - Gastrointestinal disorder [Unknown]
  - Product substitution issue [Unknown]
  - Nightmare [Unknown]
  - Nervousness [Unknown]
  - Tremor [Unknown]
  - Drug ineffective [Unknown]
